FAERS Safety Report 8229654-9 (Version None)
Quarter: 2012Q1

REPORT INFORMATION
  Report Type: 
  Country: None (occurrence: None)
  Receive Date: 20120322
  Receipt Date: 20120316
  Transmission Date: 20120608
  Serious: Yes (Other)
  Sender: FDA-Public Use
  Company Number: PHHY2012CA021089

PATIENT
  Sex: Male

DRUGS (7)
  1. VITAMIN B-12 [Concomitant]
     Dosage: 1000 IU, QD
     Route: 048
  2. FLUPENTIXOL [Concomitant]
     Dosage: 100 MG, UNK
     Dates: start: 20120215
  3. PANTOPRAZOLE [Concomitant]
     Dosage: 40 MG, BID
  4. LEVOTHYROXINE SODIUM [Concomitant]
     Dosage: 162.5 MG, QD
  5. FOLIC ACID [Concomitant]
     Dosage: 5 MG, QD
  6. CLOZARIL [Suspect]
     Indication: SCHIZOPHRENIA
     Dosage: 175 MG DAILY
     Route: 048
     Dates: start: 20120215, end: 20120302
  7. MULTI-VITAMIN [Concomitant]

REACTIONS (7)
  - RASH GENERALISED [None]
  - PYREXIA [None]
  - CONSCIOUSNESS FLUCTUATING [None]
  - GENERAL PHYSICAL HEALTH DETERIORATION [None]
  - DISORIENTATION [None]
  - DELIRIUM [None]
  - NEUROLEPTIC MALIGNANT SYNDROME [None]
